FAERS Safety Report 7218119-9 (Version None)
Quarter: 2011Q1

REPORT INFORMATION
  Report Type: 
  Country: None (occurrence: None)
  Receive Date: 20110110
  Receipt Date: 20110105
  Transmission Date: 20110831
  Serious: Yes (Hospitalization)
  Sender: FDA-Public Use
  Company Number: CH-MERCK-1012USA03144

PATIENT
  Age: 58 Year
  Sex: Female
  Weight: 51 kg

DRUGS (3)
  1. VYTORIN [Suspect]
     Indication: HYPERCHOLESTEROLAEMIA
     Route: 048
     Dates: start: 20100616, end: 20100826
  2. LEXOTANIL [Concomitant]
     Route: 065
  3. COLPERMIN [Concomitant]
     Route: 065

REACTIONS (4)
  - ATRIOVENTRICULAR BLOCK COMPLETE [None]
  - SYNCOPE [None]
  - RHABDOMYOLYSIS [None]
  - ACUTE MYOCARDIAL INFARCTION [None]
